FAERS Safety Report 8767592 (Version 1)
Quarter: 2012Q4

REPORT INFORMATION
  Report Type: 
  Country: NL (occurrence: NL)
  Receive Date: 20120904
  Receipt Date: 20120904
  Transmission Date: 20130627
  Serious: Yes (Hospitalization)
  Sender: FDA-Public Use
  Company Number: NL-PFIZER INC-2012212519

PATIENT
  Age: 71 Year
  Sex: Female
  Weight: 60 kg

DRUGS (23)
  1. GENOTROPIN [Suspect]
     Dosage: 0.2 mg, 1xday, 7injections/week
     Route: 058
     Dates: start: 20051101
  2. DYTENZIDE [Concomitant]
     Indication: ESSENTIAL HYPERTENSION
     Dosage: UNK
     Dates: start: 19870201
  3. CAPOTEN [Concomitant]
     Indication: ESSENTIAL HYPERTENSION
     Dosage: UNK
     Dates: start: 19870201
  4. ATROVENT [Concomitant]
     Indication: BRONCHITIS CHRONIC
     Dosage: UNK
     Dates: start: 19870201
  5. VENTOLIN [Concomitant]
     Indication: BRONCHITIS CHRONIC
     Dosage: UNK
     Dates: start: 19870201
  6. SYNAPAUSE [Concomitant]
     Indication: BLOOD LUTEINISING HORMONE DECREASED
     Dosage: UNK
     Dates: start: 19950901
  7. SYNAPAUSE [Concomitant]
     Indication: BLOOD FOLLICLE STIMULATING HORMONE DECREASED
  8. SYNAPAUSE [Concomitant]
     Indication: HYPOGONADISM FEMALE
  9. FLUTICASONE [Concomitant]
     Indication: ASTHMA
     Dosage: UNK
     Dates: start: 20030306
  10. DOXYCYCLINE [Concomitant]
     Indication: BRONCHITIS CHRONIC
     Dosage: UNK
     Dates: start: 19980815
  11. DICLOFENAC [Concomitant]
     Indication: ARTHRITIS
     Dosage: UNK
     Dates: start: 19980825
  12. PLAQUENIL [Concomitant]
     Indication: RHEUMATOID ARTHRITIS
     Dosage: UNK
     Dates: start: 19980825
  13. CALCIUM-SANDOZ [Concomitant]
     Indication: OSTEOPENIA
     Dosage: UNK
     Dates: start: 19980825
  14. CAPTOPRIL [Concomitant]
     Indication: HYPERTENSION
     Dosage: UNK
     Dates: start: 20020411
  15. LEVOTHYROXINE [Concomitant]
     Indication: BLOOD THYROID STIMULATING HORMONE DECREASED
     Dosage: UNK
     Dates: start: 19840801
  16. LEVOTHYROXINE [Concomitant]
     Indication: PRIMARY HYPOTHYROIDISM
  17. CALCIUM CARBONATE [Concomitant]
     Indication: CALCIUM DEFICIENCY
     Dosage: UNK
     Dates: start: 20040401
  18. PANTOPRAZOL [Concomitant]
     Dosage: UNK
     Dates: start: 20040415
  19. OFLOXACINE [Concomitant]
     Indication: LUNG INFECTION
     Dosage: UNK
     Dates: start: 20040504
  20. SALMETEROL [Concomitant]
     Indication: ASTHMA
     Dosage: UNK
     Dates: start: 20040504
  21. POTASSIUM CHLORIDE [Concomitant]
     Indication: HYPOKALAEMIA
     Dosage: UNK
     Dates: start: 20021031
  22. HYDROCORTISONE [Concomitant]
     Indication: BLOOD CORTICOTROPHIN DECREASED
     Dosage: UNK
     Dates: start: 20070419
  23. RAMIPRIL [Concomitant]
     Indication: HYPERTENSION
     Dosage: UNK
     Dates: start: 20060102

REACTIONS (1)
  - Wrist deformity [Unknown]
